FAERS Safety Report 6308175-4 (Version None)
Quarter: 2009Q3

REPORT INFORMATION
  Report Type: 
  Country: None (occurrence: None)
  Receive Date: 20090807
  Receipt Date: 20090727
  Transmission Date: 20100115
  Serious: Yes (Other)
  Sender: FDA-Public Use
  Company Number: 2009AP003096

PATIENT
  Age: 76 Year
  Sex: Male

DRUGS (3)
  1. DILT-XR (240 MG) [Suspect]
     Indication: HYPERTENSION
     Dosage: 240 MG; QD; PO
     Route: 048
     Dates: start: 20090725
  2. LISINOPRIL [Suspect]
     Indication: HYPERTENSION
     Dosage: 20 MG; QD; PO
     Route: 048
     Dates: end: 20090726
  3. DILTIAZEM [Concomitant]

REACTIONS (2)
  - BLOOD PRESSURE INCREASED [None]
  - DRUG INTERACTION [None]
